FAERS Safety Report 18032760 (Version 3)
Quarter: 2020Q3

REPORT INFORMATION
  Report Type: Spontaneous
  Country: GB (occurrence: GB)
  Receive Date: 20200716
  Receipt Date: 20200729
  Transmission Date: 20201103
  Serious: Yes (Hospitalization)
  Sender: FDA-Public Use
  Company Number: GB-PFIZER INC-2020264134

PATIENT
  Age: 26 Year
  Sex: Female

DRUGS (4)
  1. GENOTROPIN [Suspect]
     Active Substance: SOMATROPIN
     Dosage: 1 MG, DAILY
     Route: 058
     Dates: start: 2008
  2. TYROSINE [Concomitant]
     Active Substance: TYROSINE
  3. METFORMIN [Concomitant]
     Active Substance: METFORMIN HYDROCHLORIDE
  4. VITAMIN D 2000 [Concomitant]
     Active Substance: VITAMIN D NOS

REACTIONS (2)
  - Appendicitis [Recovered/Resolved]
  - Abdominal pain upper [Not Recovered/Not Resolved]
